FAERS Safety Report 14601007 (Version 1)
Quarter: 2018Q1

REPORT INFORMATION
  Report Type: Spontaneous
  Country: JP (occurrence: JP)
  Receive Date: 20180305
  Receipt Date: 20180305
  Transmission Date: 20180509
  Serious: Yes (Hospitalization)
  Sender: FDA-Public Use
  Company Number: JP-ALLERGAN-1811404US

PATIENT
  Age: 9 Decade
  Sex: Male

DRUGS (3)
  1. AVOLVE [Concomitant]
     Active Substance: DUTASTERIDE
     Indication: PRODUCT USED FOR UNKNOWN INDICATION
     Route: 048
  2. SILODOSIN - BP [Suspect]
     Active Substance: SILODOSIN
     Indication: BENIGN PROSTATIC HYPERPLASIA
     Dosage: 4 MG, BID
     Route: 065
  3. SILODOSIN - BP [Suspect]
     Active Substance: SILODOSIN
     Dosage: 4 MG, QD
     Route: 065

REACTIONS (2)
  - Urinary retention [Recovered/Resolved]
  - Inappropriate schedule of drug administration [Unknown]
